FAERS Safety Report 21861037 (Version 2)
Quarter: 2023Q1

REPORT INFORMATION
  Report Type: Spontaneous
  Country: AU (occurrence: AU)
  Receive Date: 20230113
  Receipt Date: 20230321
  Transmission Date: 20230418
  Serious: Yes (Hospitalization, Other)
  Sender: FDA-Public Use
  Company Number: AU-GSKCCFAPAC-Case-01644296_AE-66066

PATIENT

DRUGS (1)
  1. NUCALA [Suspect]
     Active Substance: MEPOLIZUMAB
     Indication: Product used for unknown indication
     Dosage: UNK
     Route: 058
     Dates: start: 20221215

REACTIONS (7)
  - Atrial fibrillation [Unknown]
  - Supraventricular extrasystoles [Unknown]
  - Heart rate increased [Unknown]
  - Palpitations [Unknown]
  - Asthenia [Unknown]
  - Fatigue [Unknown]
  - Pharyngitis [Unknown]

NARRATIVE: CASE EVENT DATE: 20221216
